FAERS Safety Report 4850706-5 (Version None)
Quarter: 2005Q4

REPORT INFORMATION
  Report Type: 
  Country: None (occurrence: None)
  Receive Date: 20051212
  Receipt Date: 20051205
  Transmission Date: 20060501
  Serious: Yes (Hospitalization)
  Sender: FDA-Public Use
  Company Number: 2005UW18243

PATIENT
  Age: 57 Year
  Sex: Male

DRUGS (2)
  1. IRESSA [Suspect]
     Indication: SQUAMOUS CELL CARCINOMA
     Route: 050
     Dates: start: 20051025
  2. IRESSA [Suspect]
     Route: 050
     Dates: start: 20050101

REACTIONS (4)
  - HAEMOGLOBIN DECREASED [None]
  - HAEMORRHAGE [None]
  - MENTAL STATUS CHANGES [None]
  - TUMOUR HAEMORRHAGE [None]
